FAERS Safety Report 6983014-7 (Version None)
Quarter: 2010Q3

REPORT INFORMATION
  Report Type: 
  Country: None (occurrence: None)
  Receive Date: 20100914
  Receipt Date: 20100513
  Transmission Date: 20110219
  Serious: Yes (Other)
  Sender: FDA-Public Use
  Company Number: US-PFIZER INC-2010061149

PATIENT
  Sex: Female
  Weight: 54 kg

DRUGS (1)
  1. LYRICA [Suspect]
     Indication: NEURALGIA
     Dosage: UNK
     Dates: start: 20091201, end: 20091201

REACTIONS (1)
  - TREMOR [None]
